FAERS Safety Report 8835728 (Version 1)
Quarter: 2012Q4

REPORT INFORMATION
  Report Type: 
  Country: US (occurrence: US)
  Receive Date: 20121011
  Receipt Date: 20121011
  Transmission Date: 20130627
  Serious: No
  Sender: FDA-Public Use
  Company Number: US-009507513-1210USA004594

PATIENT

DRUGS (3)
  1. EMEND [Suspect]
     Indication: PROPHYLAXIS OF NAUSEA AND VOMITING
     Dosage: 150 mg, UNK
     Route: 042
  2. BENADRYL [Concomitant]
  3. ZOFRAN [Concomitant]

REACTIONS (1)
  - Flushing [Recovering/Resolving]
